FAERS Safety Report 4966988-5 (Version None)
Quarter: 2006Q2

REPORT INFORMATION
  Report Type: 
  Country: None (occurrence: None)
  Receive Date: 20060403
  Receipt Date: 20060323
  Transmission Date: 20061013
  Serious: Yes (Other)
  Sender: FDA-Public Use
  Company Number: 2006041936

PATIENT
  Sex: Female
  Weight: 66.6788 kg

DRUGS (8)
  1. CELEBREX [Suspect]
     Indication: SPINAL OSTEOARTHRITIS
     Dosage: 200 MG (200 MG, DAILY INTERVAL EVERY DAY)
  2. LIPITOR [Suspect]
     Indication: BLOOD CHOLESTEROL INCREASED
     Dosage: 10 MG  (10  MG, DAILY INTERVAL: EVERY DAY)
     Dates: start: 20050101
  3. LYRICA [Suspect]
     Indication: SCIATICA
     Dosage: 50 MG (50 MG, DAILY INTERVAL:  EVERY DAY)
     Dates: start: 20050101
  4. ZOLOFT [Suspect]
     Indication: ANXIETY
     Dosage: 100 MG (100 MG, DAILY INTERVAL:  EVERY DAY)
  5. ZOLOFT [Suspect]
     Indication: DEPRESSION
     Dosage: 100 MG (100 MG, DAILY INTERVAL:  EVERY DAY)
  6. TRAZODONE HCL [Concomitant]
  7. NEXIUM [Concomitant]
  8. VICODIN (HYDROCODONE BITRATRATE, PARACETAMOL) [Concomitant]

REACTIONS (6)
  - ARTHRALGIA [None]
  - DRUG INEFFECTIVE [None]
  - NERVE COMPRESSION [None]
  - PAIN [None]
  - SYNOVIAL CYST [None]
  - THROMBOSIS [None]
